FAERS Safety Report 14233199 (Version 3)
Quarter: 2018Q2

REPORT INFORMATION
  Report Type: Spontaneous
  Country: US (occurrence: US)
  Receive Date: 20171128
  Receipt Date: 20180426
  Transmission Date: 20180711
  Serious: No
  Sender: FDA-Public Use
  Company Number: US-LUNDBECK-DKLU2030215

PATIENT
  Age: 84 Year
  Sex: Female

DRUGS (3)
  1. NORTHERA [Suspect]
     Active Substance: DROXIDOPA
     Dosage: TITRATION COMPLETE
     Route: 048
  2. NORTHERA [Suspect]
     Active Substance: DROXIDOPA
     Indication: AUTONOMIC NEUROPATHY
     Route: 048
     Dates: start: 20161204
  3. NORTHERA [Suspect]
     Active Substance: DROXIDOPA
     Indication: ORTHOSTATIC HYPOTENSION
     Route: 048
     Dates: start: 20170225

REACTIONS (10)
  - Blood pressure fluctuation [Unknown]
  - Drug ineffective [Unknown]
  - Diarrhoea [Unknown]
  - Tremor [Unknown]
  - Dizziness [Unknown]
  - Condition aggravated [Unknown]
  - Presyncope [Unknown]
  - Neck pain [Unknown]
  - Abdominal discomfort [Unknown]
  - Blood pressure abnormal [Unknown]

NARRATIVE: CASE EVENT DATE: 2017
